FAERS Safety Report 7605394-1 (Version None)
Quarter: 2011Q3

REPORT INFORMATION
  Report Type: 
  Country: None (occurrence: None)
  Receive Date: 20110713
  Receipt Date: 20110629
  Transmission Date: 20111222
  Serious: Yes (Hospitalization, Other)
  Sender: FDA-Public Use
  Company Number: US-BAYER-2011-048404

PATIENT
  Age: 75 Year
  Sex: Male

DRUGS (2)
  1. SORAFENIB (RAF KINASE INHIBITOR) [Suspect]
     Dosage: UNK
     Dates: start: 20110613
  2. SORAFENIB (RAF KINASE INHIBITOR) [Suspect]
     Indication: HEPATIC NEOPLASM MALIGNANT
     Dosage: 400 MG, BID
     Dates: start: 20110601, end: 20110606

REACTIONS (9)
  - ABDOMINAL PAIN UPPER [None]
  - HICCUPS [None]
  - DECREASED APPETITE [None]
  - HEPATIC PAIN [None]
  - DIARRHOEA [None]
  - CONSTIPATION [None]
  - CHOLELITHIASIS [None]
  - FATIGUE [None]
  - WEIGHT DECREASED [None]
